FAERS Safety Report 4784529-2 (Version None)
Quarter: 2005Q3

REPORT INFORMATION
  Report Type: 
  Country: None (occurrence: None)
  Receive Date: 20050930
  Receipt Date: 20050922
  Transmission Date: 20060218
  Serious: Yes (Hospitalization)
  Sender: FDA-Public Use
  Company Number: GB-GLAXOSMITHKLINE-B0394818A

PATIENT
  Age: 55 Year
  Sex: Male
  Weight: 64 kg

DRUGS (3)
  1. AVANDIA [Suspect]
     Indication: DIABETES MELLITUS INADEQUATE CONTROL
     Dosage: 4MG PER DAY
     Route: 048
     Dates: start: 20050301, end: 20050316
  2. METFORMIN [Concomitant]
     Dosage: 500MG THREE TIMES PER DAY
     Route: 048
     Dates: end: 20050313
  3. ATORVASTATIN [Concomitant]
     Dosage: 40MG PER DAY
     Route: 048

REACTIONS (1)
  - NEPHRITIS INTERSTITIAL [None]
